FAERS Safety Report 8063251-3 (Version None)
Quarter: 2012Q1

REPORT INFORMATION
  Report Type: 
  Country: None (occurrence: None)
  Receive Date: 20120123
  Receipt Date: 20120118
  Transmission Date: 20120608
  Serious: Yes (Other)
  Sender: FDA-Public Use
  Company Number: PHEH2010US03412

PATIENT
  Sex: Male

DRUGS (14)
  1. ZOMETA [Suspect]
  2. DEXAMETHASONE TAB [Concomitant]
     Dosage: 20 MG, QW
  3. THALIDOMIDE [Concomitant]
     Dosage: 100 MG, QHS
     Route: 048
  4. CELEXA [Concomitant]
  5. ONDANSETRON HCL [Concomitant]
     Dosage: 8 MG, TID
  6. SENNA [Concomitant]
     Dosage: 2 DF, BID
     Route: 048
  7. COLACE [Concomitant]
     Dosage: 1 DF, BID
  8. REVLIMID [Concomitant]
     Dosage: 25 MG, QD
  9. AREDIA [Suspect]
  10. ALAVERT [Concomitant]
     Dosage: 1 DF, BID
     Route: 048
  11. OXYCONTIN [Concomitant]
     Dosage: 20 MG, BID
  12. HYDROMORPHONE HCL [Concomitant]
     Dosage: 2 MG, PRN
     Route: 048
  13. PROTONIX [Concomitant]
     Dosage: 40 MG, BID
     Route: 048
  14. NORVASC [Concomitant]
     Dosage: 5 MG, QD

REACTIONS (42)
  - VENTRICULAR EXTRASYSTOLES [None]
  - OSTEOPOROSIS [None]
  - CONSTIPATION [None]
  - OSTEOPENIA [None]
  - SYNOVIAL CYST [None]
  - MUSCLE TWITCHING [None]
  - KYPHOSIS [None]
  - BACK PAIN [None]
  - THROMBOSIS [None]
  - COMPRESSION FRACTURE [None]
  - LUMBAR SPINAL STENOSIS [None]
  - PNEUMONIA [None]
  - RECTAL POLYP [None]
  - GASTROOESOPHAGEAL REFLUX DISEASE [None]
  - INFECTION [None]
  - HYPERTENSION [None]
  - THROMBOPHLEBITIS SUPERFICIAL [None]
  - HAEMORRHOIDS [None]
  - UPPER RESPIRATORY TRACT INFECTION [None]
  - FACET JOINT SYNDROME [None]
  - ANXIETY [None]
  - ANHEDONIA [None]
  - RENAL FAILURE [None]
  - PATHOLOGICAL FRACTURE [None]
  - DEEP VEIN THROMBOSIS [None]
  - CERVICAL SPINAL STENOSIS [None]
  - DISABILITY [None]
  - OEDEMA PERIPHERAL [None]
  - DEPRESSION [None]
  - DEFORMITY [None]
  - HYPERCALCAEMIA [None]
  - MULTIPLE MYELOMA [None]
  - BUNDLE BRANCH BLOCK RIGHT [None]
  - INTERVERTEBRAL DISC PROTRUSION [None]
  - ATELECTASIS [None]
  - OSTEONECROSIS OF JAW [None]
  - INJURY [None]
  - PAIN [None]
  - TOOTHACHE [None]
  - CELLULITIS [None]
  - SLEEP APNOEA SYNDROME [None]
  - INTERVERTEBRAL DISC DEGENERATION [None]
